FAERS Safety Report 6524245-X (Version None)
Quarter: 2009Q4

REPORT INFORMATION
  Report Type: 
  Country: None (occurrence: None)
  Receive Date: 20091230
  Receipt Date: 20091230
  Transmission Date: 20100525
  Serious: Yes (Hospitalization)
  Sender: FDA-Public Use
  Company Number: None

PATIENT
  Age: 56 Year
  Sex: Male
  Weight: 118.1 kg

DRUGS (1)
  1. PIOGLITAZONE [Suspect]
     Indication: DIABETES MELLITUS
     Dosage: 15 MG EVERY DAY PO
     Route: 048
     Dates: start: 20060628, end: 20080310

REACTIONS (2)
  - CARDIAC FAILURE CONGESTIVE [None]
  - GENERALISED OEDEMA [None]
